FAERS Safety Report 5630927-4 (Version None)
Quarter: 2008Q1

REPORT INFORMATION
  Report Type: 
  Country: None (occurrence: None)
  Receive Date: 20080131
  Receipt Date: 20071018
  Transmission Date: 20080703
  Serious: No
  Sender: FDA-Public Use
  Company Number: 163-21880-07101040

PATIENT
  Sex: Female

DRUGS (2)
  1. REVLIMID [Suspect]
     Indication: MULTIPLE MYELOMA
     Dosage: 15 MG, DAILY DAYS 1 TO 21, ORAL ; 25 MG, DAILY DAYS 1 TO 21, ORAL
     Route: 048
     Dates: start: 20060701, end: 20071001
  2. REVLIMID [Suspect]
     Indication: MULTIPLE MYELOMA
     Dosage: 15 MG, DAILY DAYS 1 TO 21, ORAL ; 25 MG, DAILY DAYS 1 TO 21, ORAL
     Route: 048
     Dates: start: 20071016

REACTIONS (2)
  - CONDITION AGGRAVATED [None]
  - NEUROPATHY PERIPHERAL [None]
